FAERS Safety Report 7340322-8 (Version None)
Quarter: 2011Q1

REPORT INFORMATION
  Report Type: 
  Country: None (occurrence: None)
  Receive Date: 20110309
  Receipt Date: 20110302
  Transmission Date: 20110831
  Serious: No
  Sender: FDA-Public Use
  Company Number: US-BIOGENIDEC-2010BI021732

PATIENT
  Age: 42 Year
  Sex: Male

DRUGS (1)
  1. TYSABRI [Suspect]
     Indication: MULTIPLE SCLEROSIS
     Route: 042
     Dates: start: 20100322

REACTIONS (6)
  - MICTURITION URGENCY [None]
  - HYPERTENSION [None]
  - SINUSITIS [None]
  - BLOOD PRESSURE INCREASED [None]
  - HYPOTENSION [None]
  - PYREXIA [None]
